FAERS Safety Report 6993684-5 (Version None)
Quarter: 2010Q3

REPORT INFORMATION
  Report Type: 
  Country: None (occurrence: None)
  Receive Date: 20100917
  Receipt Date: 20100719
  Transmission Date: 20110219
  Serious: No
  Sender: FDA-Public Use
  Company Number: US-ASTRAZENECA-2010SE33558

PATIENT
  Age: 59 Year
  Sex: Female
  Weight: 127 kg

DRUGS (4)
  1. SEROQUEL [Suspect]
     Indication: DEPRESSION
     Route: 048
  2. SEROQUEL [Suspect]
     Indication: INSOMNIA
     Route: 048
  3. ASPIRIN [Concomitant]
     Indication: ATRIAL FIBRILLATION
  4. BISOPROLOL [Concomitant]
     Indication: HYPERTENSION

REACTIONS (4)
  - CRYING [None]
  - DEPRESSION [None]
  - DRUG DOSE OMISSION [None]
  - INSOMNIA [None]
